FAERS Safety Report 8034624-X (Version None)
Quarter: 2012Q1

REPORT INFORMATION
  Report Type: 
  Country: None (occurrence: None)
  Receive Date: 20120110
  Receipt Date: 20120105
  Transmission Date: 20120608
  Serious: Yes (Hospitalization)
  Sender: FDA-Public Use
  Company Number: US-MERCK-1107USA00199

PATIENT
  Sex: Female

DRUGS (1)
  1. FOSAMAX [Suspect]
     Indication: OSTEOPOROSIS
     Route: 048
     Dates: start: 20000101, end: 20110701

REACTIONS (5)
  - FRACTURE NONUNION [None]
  - ARTHROPATHY [None]
  - DEEP VEIN THROMBOSIS [None]
  - ANKLE FRACTURE [None]
  - FEMUR FRACTURE [None]
